FAERS Safety Report 8762058 (Version 2)
Quarter: 2012Q4

REPORT INFORMATION
  Report Type: 
  Country: JP (occurrence: JP)
  Receive Date: 20120829
  Receipt Date: 20120911
  Transmission Date: 20130627
  Serious: Yes (Other)
  Sender: FDA-Public Use
  Company Number: JP-PFIZER INC-2012209190

PATIENT

DRUGS (2)
  1. CORTRIL [Suspect]
     Indication: RESPIRATORY DISORDER
     Route: 048
  2. CORTRIL [Suspect]
     Indication: ADRENAL INSUFFICIENCY

REACTIONS (2)
  - Aspiration [Unknown]
  - Dysphagia [Unknown]
